FAERS Safety Report 18453465 (Version 3)
Quarter: 2020Q4

REPORT INFORMATION
  Report Type: Spontaneous
  Country: JP (occurrence: JP)
  Receive Date: 20201102
  Receipt Date: 20201210
  Transmission Date: 20210114
  Serious: Yes (Death, Hospitalization)
  Sender: FDA-Public Use
  Company Number: JP-JNJFOC-20201046669

PATIENT
  Sex: Male

DRUGS (3)
  1. ZYTIGA [Suspect]
     Active Substance: ABIRATERONE ACETATE
     Indication: HORMONE-REFRACTORY PROSTATE CANCER
     Dosage: DOSE UNKNOWN,UPON AWAKENING
     Route: 048
     Dates: start: 20200929
  2. AMARYL [Concomitant]
     Active Substance: GLIMEPIRIDE
     Indication: DIABETES MELLITUS
     Route: 048
  3. PREDONINE [Concomitant]
     Active Substance: PREDNISOLONE
     Indication: HORMONE-REFRACTORY PROSTATE CANCER
     Dosage: DOSE UNKNOWN, AFTER BREAKFAST
     Route: 048
     Dates: start: 20200929

REACTIONS (1)
  - Hyperglycaemia [Fatal]

NARRATIVE: CASE EVENT DATE: 20201004
